FAERS Safety Report 6810175-2 (Version None)
Quarter: 2010Q2

REPORT INFORMATION
  Report Type: 
  Country: None (occurrence: None)
  Receive Date: 20100630
  Receipt Date: 20100621
  Transmission Date: 20101027
  Serious: Yes (Hospitalization, Other)
  Sender: FDA-Public Use
  Company Number: NZ-ELI_LILLY_AND_COMPANY-NZ201003006981

PATIENT
  Age: 53 Year
  Sex: Female

DRUGS (6)
  1. HUMALOG MIX 75/25 [Suspect]
     Indication: HYPOGLYCAEMIA
     Dosage: 28 U, 2/D
     Route: 065
     Dates: start: 20090901, end: 20100301
  2. HUMALOG [Suspect]
     Dosage: UNK, UNKNOWN
     Route: 065
  3. METFORMIN HCL [Concomitant]
     Dosage: 1 G, 2/D
     Route: 065
  4. LIPEX [Concomitant]
     Dosage: 40 MG, DAILY (1/D)
     Route: 065
  5. INHIBACE [Concomitant]
     Dosage: 5 MG, DAILY (1/D)
     Route: 065
  6. HUMULIN N [Concomitant]
     Dosage: UNK, 2/D

REACTIONS (4)
  - DRUG DISPENSING ERROR [None]
  - HYPERGLYCAEMIA [None]
  - HYPOGLYCAEMIA [None]
  - SURGERY [None]
